FAERS Safety Report 8621284-X (Version None)
Quarter: 2012Q3

REPORT INFORMATION
  Report Type: 
  Country: None (occurrence: None)
  Receive Date: 20120824
  Receipt Date: 20120813
  Transmission Date: 20120928
  Serious: Yes (Hospitalization, Disabling)
  Sender: FDA-Public Use
  Company Number: CO-ALLERGAN-1211229US

PATIENT
  Age: 50 Year
  Sex: Female
  Weight: 51 kg

DRUGS (2)
  1. BOTULINUM TOXIN TYPE A [Suspect]
     Indication: SKIN WRINKLING
     Dosage: 15 UNITS, SINGLE
     Route: 030
     Dates: start: 20120728, end: 20120728
  2. BOTULINUM TOXIN TYPE A [Suspect]
     Dosage: 15 UNITS, SINGLE
     Dates: start: 20120728, end: 20120728

REACTIONS (6)
  - DYSPNOEA [None]
  - TACHYCARDIA [None]
  - CHEST DISCOMFORT [None]
  - ASTHENIA [None]
  - DYSPHAGIA [None]
  - WRONG TECHNIQUE IN DRUG USAGE PROCESS [None]
